FAERS Safety Report 9450827 (Version 1)
Quarter: 2013Q3

REPORT INFORMATION
  Report Type: Spontaneous
  Country: US (occurrence: US)
  Receive Date: 20130809
  Receipt Date: 20130809
  Transmission Date: 20140515
  Serious: No
  Sender: FDA-Public Use
  Company Number: US-PFIZER INC-2013230301

PATIENT
  Age: 47 Year
  Sex: Female
  Weight: 82 kg

DRUGS (2)
  1. ZOLOFT [Suspect]
     Indication: POST-TRAUMATIC STRESS DISORDER
     Dosage: 100 MG, DAILY
  2. ZOLOFT [Suspect]
     Indication: PANIC ATTACK

REACTIONS (4)
  - Alopecia [Unknown]
  - Weight increased [Unknown]
  - Fatigue [Unknown]
  - Feeling abnormal [Unknown]
